FAERS Safety Report 5876983-X (Version None)
Quarter: 2008Q3

REPORT INFORMATION
  Report Type: 
  Country: None (occurrence: None)
  Receive Date: 20080910
  Receipt Date: 20080901
  Transmission Date: 20090109
  Serious: Yes (Other)
  Sender: FDA-Public Use
  Company Number: PHHY2008FR13723

PATIENT
  Sex: Female

DRUGS (7)
  1. EXELON [Suspect]
     Indication: PARKINSON'S DISEASE
     Dosage: 1.5 MG, BID
     Dates: start: 20080601, end: 20080712
  2. EXELON [Suspect]
     Indication: DEMENTIA
  3. RENITEC [Concomitant]
     Dosage: 20 MG DAILY
  4. CARVEDILOL [Concomitant]
     Dosage: 12.5 MG DAILY
  5. ASPIRIN [Concomitant]
     Dosage: 160 MG DAILY
  6. PRAXILENE [Concomitant]
     Dosage: 200 MG,DAILY
  7. LIPANOR [Concomitant]

REACTIONS (11)
  - BRAIN NATRIURETIC PEPTIDE INCREASED [None]
  - CARDIOMEGALY [None]
  - CONDITION AGGRAVATED [None]
  - DIASTOLIC DYSFUNCTION [None]
  - DILATATION VENTRICULAR [None]
  - EJECTION FRACTION DECREASED [None]
  - ELECTROCARDIOGRAM ABNORMAL [None]
  - HEART RATE DECREASED [None]
  - MITRAL VALVE INCOMPETENCE [None]
  - OEDEMA PERIPHERAL [None]
  - PULMONARY ARTERIAL PRESSURE INCREASED [None]
